FAERS Safety Report 8967141 (Version 1)
Quarter: 2012Q4

REPORT INFORMATION
  Report Type: Report from Study
  Country: US (occurrence: US)
  Receive Date: 20121214
  Receipt Date: 20121214
  Transmission Date: 20130627
  Serious: Yes (Other)
  Sender: FDA-Public Use
  Company Number: US-ROCHE-1162887

PATIENT
  Age: 57 Year
  Sex: Male
  Weight: 52.98 kg

DRUGS (15)
  1. PEG-INTERFERON ALFA 2A [Suspect]
     Indication: HEPATITIS C
     Route: 058
     Dates: start: 20120831, end: 20121128
  2. RIBAVIRIN [Suspect]
     Indication: HEPATITIS C
     Route: 048
     Dates: start: 20120831, end: 20121128
  3. IBUPROFEN [Concomitant]
     Route: 048
  4. VICODIN [Concomitant]
     Dosage: 1-2 tabs
     Route: 048
  5. ASPIRIN [Concomitant]
     Route: 048
  6. PROCTOSOL-HC [Concomitant]
     Dosage: Apply 1 application to rectum when required as directed
     Route: 061
     Dates: start: 20100202
  7. OXYCONTIN [Concomitant]
     Route: 048
     Dates: start: 20121130
  8. CEFAZOLIN [Concomitant]
     Route: 042
     Dates: start: 20121130
  9. HYDROCODONE/ACETAMINOPHEN [Concomitant]
     Dosage: 1-2 tabs
     Route: 048
     Dates: start: 20121129
  10. HYDROCORTISONE [Concomitant]
     Route: 061
     Dates: start: 20121129
  11. SODIUM CHLORIDE [Concomitant]
     Route: 042
     Dates: start: 20121129
  12. ZOFRAN [Concomitant]
     Route: 065
     Dates: start: 20121129
  13. COLACE [Concomitant]
     Route: 048
     Dates: start: 20121129
  14. AMBIEN [Concomitant]
     Route: 048
     Dates: start: 20121129
  15. MOTRIN [Concomitant]
     Route: 048
     Dates: start: 20121129

REACTIONS (9)
  - Haemorrhage [Unknown]
  - Eye haemorrhage [Unknown]
  - Drug intolerance [Unknown]
  - Fatigue [Unknown]
  - Anaemia [Unknown]
  - Weight decreased [Unknown]
  - Eye movement disorder [Unknown]
  - Eye pain [Unknown]
  - Eye swelling [Unknown]
